FAERS Safety Report 5590334-X (Version None)
Quarter: 2007Q4

REPORT INFORMATION
  Report Type: 
  Country: None (occurrence: None)
  Receive Date: 20071214
  Receipt Date: 20070815
  Transmission Date: 20080405
  Serious: Yes (Other)
  Sender: FDA-Public Use
  Company Number: 2007067781

PATIENT
  Age: 60 Year
  Sex: Female
  Weight: 82.6 kg

DRUGS (5)
  1. XANAX [Suspect]
     Indication: ANXIETY
     Dosage: 0.75 MG (0.25 MG,3 IN 1 D)
     Dates: start: 20070101, end: 20070813
  2. XANAX [Suspect]
     Indication: DEPRESSION
     Dosage: 0.75 MG (0.25 MG,3 IN 1 D)
     Dates: start: 20070101, end: 20070813
  3. PAROXETINE HCL [Concomitant]
  4. CARDIZEM [Concomitant]
  5. ALL OTHER THERAPEUTIC PRODUCTS (ALL OTHER THERAPEUTIC PRODUCTS) [Concomitant]

REACTIONS (6)
  - ABNORMAL DREAMS [None]
  - DRUG DEPENDENCE [None]
  - MEMORY IMPAIRMENT [None]
  - OBSESSIVE THOUGHTS [None]
  - THINKING ABNORMAL [None]
  - UNEVALUABLE EVENT [None]
